FAERS Safety Report 23853138 (Version 1)
Quarter: 2024Q2

REPORT INFORMATION
  Report Type: Spontaneous
  Country: JP (occurrence: JP)
  Receive Date: 20240514
  Receipt Date: 20240514
  Transmission Date: 20240716
  Serious: Yes (Other)
  Sender: FDA-Public Use
  Company Number: JP-AMGEN-JPNSP2024094123

PATIENT
  Age: 15 Year
  Sex: Male

DRUGS (2)
  1. BLINCYTO [Suspect]
     Active Substance: BLINATUMOMAB
     Indication: B precursor type acute leukaemia
     Dosage: 9, 28 MICROGRAM (24 HOUR DRIP INFUSION),(CENTRAL VENOUS) CONTINUING
     Route: 042
     Dates: start: 20240123, end: 2024
  2. BLINCYTO [Suspect]
     Active Substance: BLINATUMOMAB
     Dosage: 9, 28 MICROGRAM (24 HOUR DRIP INFUSION),(CENTRAL VENOUS) CONTINUING
     Route: 042
     Dates: start: 2024

REACTIONS (1)
  - Syncope [Recovered/Resolved]

NARRATIVE: CASE EVENT DATE: 20240501
